FAERS Safety Report 6387405-7 (Version None)
Quarter: 2009Q3

REPORT INFORMATION
  Report Type: 
  Country: None (occurrence: None)
  Receive Date: 20090930
  Receipt Date: 20090918
  Transmission Date: 20100115
  Serious: Yes (Other)
  Sender: FDA-Public Use
  Company Number: 310005J09USA

PATIENT
  Age: 41 Year
  Sex: Female
  Weight: 69 kg

DRUGS (5)
  1. GONAL-F [Suspect]
     Indication: INFERTILITY
     Dosage: 75 IU, 1 IN 1 DAYS, 150 IU, 1 IN 1 DAYS, 75 IU, 2 IN 1 DAYS, 75 IU 1 IN 1 DAYS
     Dates: start: 20090424, end: 20090503
  2. GONAL-F [Suspect]
     Indication: INFERTILITY
     Dosage: 75 IU, 1 IN 1 DAYS, 150 IU, 1 IN 1 DAYS, 75 IU, 2 IN 1 DAYS, 75 IU 1 IN 1 DAYS
     Dates: start: 20090424, end: 20090503
  3. GONAL-F [Suspect]
     Indication: INFERTILITY
     Dosage: 75 IU, 1 IN 1 DAYS, 150 IU, 1 IN 1 DAYS, 75 IU, 2 IN 1 DAYS, 75 IU 1 IN 1 DAYS
     Dates: start: 20090504, end: 20090504
  4. GONAL-F [Suspect]
     Indication: INFERTILITY
     Dosage: 75 IU, 1 IN 1 DAYS, 150 IU, 1 IN 1 DAYS, 75 IU, 2 IN 1 DAYS, 75 IU 1 IN 1 DAYS
     Dates: start: 20090505, end: 20090505
  5. CHORIONIC GONADOTROPIN [Suspect]
     Indication: INFERTILITY
     Dates: start: 20090505, end: 20090505

REACTIONS (2)
  - ABORTION SPONTANEOUS [None]
  - DRUG EXPOSURE BEFORE PREGNANCY [None]
